FAERS Safety Report 19584699 (Version 1)
Quarter: 2021Q3

REPORT INFORMATION
  Report Type: Other
  Country: KR (occurrence: KR)
  Receive Date: 20210720
  Receipt Date: 20210720
  Transmission Date: 20211014
  Serious: Yes (Hospitalization)
  Sender: FDA-Public Use
  Company Number: KR-ROCHE-2782621

PATIENT
  Age: 63 Year
  Sex: Male
  Weight: 83 kg

DRUGS (22)
  1. CARBOPLATIN. [Suspect]
     Active Substance: CARBOPLATIN
     Route: 042
     Dates: start: 20210322
  2. ETOPOSIDE. [Suspect]
     Active Substance: ETOPOSIDE
     Dosage: 23/MAR/2021 AND 24/MAR/2021, MOST RECENT DOS OF ETOPOSIDE.
     Route: 042
     Dates: start: 20210322
  3. LEBROCOL [Concomitant]
     Indication: CHRONIC OBSTRUCTIVE PULMONARY DISEASE
     Route: 048
     Dates: start: 20201211
  4. ETOPOSIDE. [Suspect]
     Active Substance: ETOPOSIDE
     Dosage: 02/FEB/2021, 03/FEB/2021, 23/FEB/2021, 24/FEB/2021, 25/FEB/2021, 22/MAR/2021, 23/MAR/2021, 24/MAR/20
     Route: 042
     Dates: start: 20210201
  5. ESODUO [Concomitant]
     Indication: PROPHYLAXIS
     Route: 048
     Dates: start: 20201211
  6. HARNAL [Concomitant]
     Active Substance: TAMSULOSIN HYDROCHLORIDE
     Indication: BENIGN PROSTATIC HYPERPLASIA
     Route: 048
     Dates: start: 20200204
  7. TARGIN [Concomitant]
     Active Substance: NALOXONE HYDROCHLORIDE\OXYCODONE HYDROCHLORIDE
     Indication: PAIN
     Route: 048
     Dates: start: 20210116
  8. GASMOTIN [Concomitant]
     Active Substance: MOSAPRIDE CITRATE
     Indication: PROPHYLAXIS
     Route: 048
     Dates: start: 20210226
  9. ATEZOLIZUMAB. [Suspect]
     Active Substance: ATEZOLIZUMAB
     Dosage: ON 03/MAY/2021, 31/MAY/2021 AND 21/JUN/2021 MOST RECENT DOSE OF ATEZOLIZUMAB (MAINTENANCE)
     Route: 041
     Dates: start: 20210412
  10. ESWONAMP [Concomitant]
     Indication: DYSPEPSIA
     Route: 048
     Dates: start: 20210524, end: 20210531
  11. CARBOPLATIN. [Suspect]
     Active Substance: CARBOPLATIN
     Route: 042
     Dates: start: 20210223
  12. ETOPOSIDE. [Suspect]
     Active Substance: ETOPOSIDE
     Indication: SMALL CELL LUNG CANCER EXTENSIVE STAGE
     Dosage: 12/JAN/2021, 13/JAN/2021 MOST RECENT DOSE OF ETOPOSIDE.
     Route: 042
     Dates: start: 20210111
  13. ERDOIN [Concomitant]
     Indication: PRODUCTIVE COUGH
     Route: 048
     Dates: start: 20201211
  14. HOKUNALIN [Concomitant]
     Active Substance: TULOBUTEROL
     Indication: PRODUCTIVE COUGH
     Route: 048
     Dates: start: 20210503, end: 20210629
  15. CARBOPLATIN. [Suspect]
     Active Substance: CARBOPLATIN
     Route: 042
     Dates: start: 20210201
  16. DUPHALAC EASY [Concomitant]
     Active Substance: LACTULOSE
     Dates: start: 20210225, end: 20210307
  17. ATEZOLIZUMAB. [Suspect]
     Active Substance: ATEZOLIZUMAB
     Indication: SMALL CELL LUNG CANCER EXTENSIVE STAGE
     Dosage: 01/FEB/2021, 23/FEB/2021, 22/MAR/2021, MOST RECENT DOSE OF ATEZOLIZUMAB (INDUCTION).
     Route: 041
     Dates: start: 20210111
  18. CARBOPLATIN. [Suspect]
     Active Substance: CARBOPLATIN
     Indication: SMALL CELL LUNG CANCER EXTENSIVE STAGE
     Route: 042
     Dates: start: 20210111
  19. BANAN [Concomitant]
     Active Substance: CEFPODOXIME PROXETIL
     Indication: BRONCHITIS CHRONIC
     Dates: start: 20200119, end: 20210121
  20. DUPHALAC EASY [Concomitant]
     Active Substance: LACTULOSE
     Indication: CONSTIPATION
     Dates: start: 20210114, end: 20210118
  21. MACPERAN [Concomitant]
     Active Substance: METOCLOPRAMIDE HYDROCHLORIDE
     Indication: DYSPEPSIA
     Dates: start: 20210114, end: 20210303
  22. RELVAR ELLIPTA [Concomitant]
     Active Substance: FLUTICASONE FUROATE\VILANTEROL TRIFENATATE
     Indication: PRODUCTIVE COUGH
     Dosage: 30 DOSE
     Dates: start: 20210630

REACTIONS (7)
  - Blood thyroid stimulating hormone decreased [Recovering/Resolving]
  - Decreased appetite [Recovering/Resolving]
  - Asthenia [Recovering/Resolving]
  - Insomnia [Recovering/Resolving]
  - Blood urea increased [Recovering/Resolving]
  - Dysphagia [Recovering/Resolving]
  - Atypical pneumonia [Recovered/Resolved]

NARRATIVE: CASE EVENT DATE: 20210503
